FAERS Safety Report 8761269 (Version 1)
Quarter: 2012Q4

REPORT INFORMATION
  Report Type: 
  Country: US (occurrence: US)
  Receive Date: 20120830
  Receipt Date: 20120830
  Transmission Date: 20130627
  Serious: Yes (Hospitalization)
  Sender: FDA-Public Use
  Company Number: US-ABBOTT-12P-163-0973188-00

PATIENT
  Sex: Female
  Weight: 54.48 kg

DRUGS (6)
  1. SYNTHROID 88 MCG [Suspect]
     Indication: HYPOTHYROIDISM
  2. PROVIGIL [Concomitant]
     Indication: SLEEP DISORDER
  3. HYDROCODONE [Concomitant]
     Indication: PRODUCT USED FOR UNKNOWN INDICATION
  4. ADVAIR [Concomitant]
     Indication: PRODUCT USED FOR UNKNOWN INDICATION
  5. NEUROTIN [Concomitant]
     Indication: RESTLESS LEGS SYNDROME
  6. UNKNOWN NASAL SPRAY [Concomitant]
     Indication: PRODUCT USED FOR UNKNOWN INDICATION
     Route: 045

REACTIONS (8)
  - Loss of consciousness [Recovered/Resolved]
  - Dehydration [Recovered/Resolved]
  - Dyspnoea [Not Recovered/Not Resolved]
  - Oropharyngeal discomfort [Not Recovered/Not Resolved]
  - Weight increased [Not Recovered/Not Resolved]
  - Fatigue [Not Recovered/Not Resolved]
  - Drug level decreased [Unknown]
  - Suspected counterfeit product [Unknown]
